FAERS Safety Report 12242487 (Version 1)
Quarter: 2016Q2

REPORT INFORMATION
  Report Type: Spontaneous
  Country: US (occurrence: None)
  Receive Date: 20160405
  Receipt Date: 20160405
  Transmission Date: 20160815
  Serious: Yes (Other)
  Sender: FDA-Public Use
  Company Number: None

PATIENT
  Age: 68 Year
  Sex: Female
  Weight: 60.78 kg

DRUGS (3)
  1. MULTI-VITAMINS (CALCIUM PANTOTHENATE, FOLIC ACID, VITAMINS NOS) [Concomitant]
     Active Substance: VITAMINS
  2. BOTOX [Suspect]
     Active Substance: ONABOTULINUMTOXINA
     Indication: SKIN WRINKLING
     Dates: end: 20150319
  3. THYROID MEDICATION [Concomitant]
     Active Substance: UNSPECIFIED INGREDIENT

REACTIONS (6)
  - Vision blurred [None]
  - IIIrd nerve paresis [None]
  - Meniscus injury [None]
  - Eyelid ptosis [None]
  - Activities of daily living impaired [None]
  - Balance disorder [None]

NARRATIVE: CASE EVENT DATE: 20150324
